FAERS Safety Report 9020898 (Version 1)
Quarter: 2013Q1

REPORT INFORMATION
  Report Type: Spontaneous
  Country: US (occurrence: US)
  Receive Date: 20130119
  Receipt Date: 20130119
  Transmission Date: 20140127
  Serious: No
  Sender: FDA-Public Use
  Company Number: US-ALLERGAN-1205431US

PATIENT
  Age: 77 Year
  Sex: Male

DRUGS (11)
  1. BOTOX? [Suspect]
     Indication: MUSCLE TWITCHING
     Dosage: UNK
     Dates: start: 20120405, end: 20120405
  2. ACETAMINOPHEN [Concomitant]
     Indication: PRODUCT USED FOR UNKNOWN INDICATION
     Dosage: 325 MG, UNK
  3. AMITRIPTYLIN [Concomitant]
     Indication: CARDIAC DISORDER
     Dosage: 25 MG, UNK
  4. AMLODIPINE [Concomitant]
     Indication: CARDIAC DISORDER
     Dosage: 10 MG, UNK
  5. CLORAZEPAM [Concomitant]
     Indication: BLEPHAROSPASM
     Dosage: 0.5 MG, UNK
  6. PANTOPRAZOLE [Concomitant]
     Indication: PRODUCT USED FOR UNKNOWN INDICATION
     Dosage: 20 MG, UNK
  7. SPIRONOLACTONE [Concomitant]
     Indication: DIURETIC THERAPY
  8. TAMSULOSIN [Concomitant]
     Indication: PRODUCT USED FOR UNKNOWN INDICATION
     Dosage: 0.4 MG, UNK
  9. FISH OIL [Concomitant]
     Indication: PRODUCT USED FOR UNKNOWN INDICATION
  10. OMEPRAZOLE [Concomitant]
     Indication: PRODUCT USED FOR UNKNOWN INDICATION
     Dosage: 20 MG, UNK
  11. LEXAPRO [Concomitant]
     Indication: CARDIAC DISORDER
     Dosage: 10 MG, UNK

REACTIONS (1)
  - Eyelid ptosis [Not Recovered/Not Resolved]
